FAERS Safety Report 23328869 (Version 2)
Quarter: 2024Q1

REPORT INFORMATION
  Report Type: Spontaneous
  Country: US (occurrence: US)
  Receive Date: 20231222
  Receipt Date: 20240130
  Transmission Date: 20240410
  Serious: No
  Sender: FDA-Public Use
  Company Number: US-002147023-NVSC2023US271564

PATIENT
  Age: 5 Year
  Sex: Male
  Weight: 19.3 kg

DRUGS (1)
  1. ILARIS [Suspect]
     Active Substance: CANAKINUMAB
     Indication: Pyrexia
     Dosage: 75 MG, Q4W
     Route: 058

REACTIONS (1)
  - Product label confusion [Recovered/Resolved]

NARRATIVE: CASE EVENT DATE: 20231214
